FAERS Safety Report 5852785-5 (Version None)
Quarter: 2008Q3

REPORT INFORMATION
  Report Type: 
  Country: None (occurrence: None)
  Receive Date: 20080821
  Receipt Date: 20080812
  Transmission Date: 20090109
  Serious: Yes (Hospitalization, Other)
  Sender: FDA-Public Use
  Company Number: NL-MERCK-0808NLD00009

PATIENT
  Age: 52 Year
  Sex: Female

DRUGS (6)
  1. SINGULAIR [Suspect]
     Route: 048
     Dates: start: 20070401, end: 20071201
  2. BUDESONIDE AND FORMOTEROL FUMARATE [Concomitant]
     Dates: start: 20070604
  3. FLUTICASONE PROPIONATE [Concomitant]
     Route: 065
     Dates: start: 20070516
  4. DIAZEPAM [Concomitant]
     Route: 048
     Dates: start: 20070516, end: 20071227
  5. DIAZEPAM [Concomitant]
     Route: 048
     Dates: start: 20071228, end: 20080107
  6. ACETAMINOPHEN [Concomitant]
     Route: 048
     Dates: start: 20070516, end: 20071004

REACTIONS (10)
  - ABNORMAL DREAMS [None]
  - DIARRHOEA [None]
  - DRY MOUTH [None]
  - HAEMATOMA [None]
  - MEMORY IMPAIRMENT [None]
  - MENTAL DISORDER [None]
  - PALPITATIONS [None]
  - SUICIDAL IDEATION [None]
  - SYNCOPE [None]
  - WEIGHT DECREASED [None]
